FAERS Safety Report 19734698 (Version 1)
Quarter: 2021Q3

REPORT INFORMATION
  Report Type: Spontaneous
  Country: FR (occurrence: FR)
  Receive Date: 20210824
  Receipt Date: 20210824
  Transmission Date: 20211014
  Serious: No
  Sender: FDA-Public Use
  Company Number: FR-LUPIN PHARMACEUTICALS INC.-2021-15227

PATIENT
  Age: 74 Year
  Sex: Male

DRUGS (3)
  1. CAPECITABINE. [Concomitant]
     Active Substance: CAPECITABINE
     Indication: SMALL INTESTINE ADENOCARCINOMA
     Dosage: 2150 MILLIGRAM, BID (21 DAYS CYCLE INCLUDING 14 DAYS OF CONTINUOUS ADMINISTRATION FOLLOWED BY A 7 DA
     Route: 048
  2. BETAMETHASONE. [Suspect]
     Active Substance: BETAMETHASONE
     Indication: PALMAR-PLANTAR ERYTHRODYSAESTHESIA SYNDROME
  3. BETAMETHASONE. [Suspect]
     Active Substance: BETAMETHASONE
     Indication: VITILIGO
     Dosage: UNK
     Route: 061

REACTIONS (1)
  - Drug ineffective [Unknown]
